FAERS Safety Report 9885154 (Version 1)
Quarter: 2014Q1

REPORT INFORMATION
  Report Type: Spontaneous
  Country: GB (occurrence: GB)
  Receive Date: 20140210
  Receipt Date: 20140210
  Transmission Date: 20141002
  Serious: Yes (Other)
  Sender: FDA-Public Use
  Company Number: GB-BAYER-2014-016558

PATIENT
  Sex: Female

DRUGS (1)
  1. NIMOTOP 0.02% SOLUTION FOR INFUSION [Suspect]
     Indication: ARTERIAL SPASM
     Dosage: 2 MG OVER TEN MINUTES
     Route: 013

REACTIONS (5)
  - Urinary retention [None]
  - Incontinence [None]
  - Muscular weakness [None]
  - Incorrect route of drug administration [None]
  - Malaise [None]
